FAERS Safety Report 19111363 (Version 3)
Quarter: 2022Q1

REPORT INFORMATION
  Report Type: Spontaneous
  Country: US (occurrence: US)
  Receive Date: 20210408
  Receipt Date: 20220309
  Transmission Date: 20220423
  Serious: No
  Sender: FDA-Public Use
  Company Number: US-PFIZER INC-2021209697

PATIENT
  Age: 7 Year
  Sex: Female

DRUGS (3)
  1. XELJANZ [Suspect]
     Active Substance: TOFACITINIB CITRATE
     Indication: Alopecia areata
     Dosage: 5 MG
     Dates: start: 20210218
  2. XELJANZ [Suspect]
     Active Substance: TOFACITINIB CITRATE
     Indication: Inflammatory bowel disease
     Dosage: 5 MG, 2X/DAY
     Route: 048
  3. XELJANZ [Suspect]
     Active Substance: TOFACITINIB CITRATE
     Indication: Crohn^s disease

REACTIONS (7)
  - Off label use [Unknown]
  - Off label use [Unknown]
  - Drug effective for unapproved indication [Unknown]
  - Illness [Unknown]
  - Alopecia [Recovering/Resolving]
  - Pain [Unknown]
  - Autoinflammatory disease [Recovered/Resolved]

NARRATIVE: CASE EVENT DATE: 20210101
